FAERS Safety Report 22083152 (Version 1)
Quarter: 2023Q1

REPORT INFORMATION
  Report Type: Spontaneous
  Country: FR (occurrence: FR)
  Receive Date: 20230310
  Receipt Date: 20230310
  Transmission Date: 20230417
  Serious: Yes (Other)
  Sender: FDA-Public Use
  Company Number: None

PATIENT
  Age: 68 Year
  Sex: Male
  Weight: 60 kg

DRUGS (26)
  1. PEMETREXED [Suspect]
     Active Substance: PEMETREXED
     Indication: Lung adenocarcinoma
     Dates: start: 20220613, end: 20220613
  2. INNOHEP [Concomitant]
     Active Substance: TINZAPARIN SODIUM
  3. ALBUTEROL [Concomitant]
     Active Substance: ALBUTEROL
  4. VIMPAT [Concomitant]
     Active Substance: LACOSAMIDE
  5. PEMBROLIZUMAB [Concomitant]
     Active Substance: PEMBROLIZUMAB
     Indication: Lung adenocarcinoma
     Dates: start: 20220613
  6. FUROSEMIDE [Concomitant]
     Active Substance: FUROSEMIDE
  7. PERINDOPRIL [Concomitant]
     Active Substance: PERINDOPRIL
  8. PRIMPERAN [Concomitant]
     Active Substance: METOCLOPRAMIDE HYDROCHLORIDE
  9. CARBOPLATIN [Concomitant]
     Active Substance: CARBOPLATIN
     Indication: Lung adenocarcinoma
     Dates: start: 20220826, end: 20220826
  10. ATORVASTATIN [Concomitant]
     Active Substance: ATORVASTATIN
  11. FLUTICASONE FUROATE\UMECLIDINIUM BROMIDE\VILANTEROL TRIFENATATE [Concomitant]
     Active Substance: FLUTICASONE FUROATE\UMECLIDINIUM BROMIDE\VILANTEROL TRIFENATATE
     Dosage: 92MCG/55 MCG/22 MCG
  12. FOLIC ACID [Concomitant]
     Active Substance: FOLIC ACID
  13. SKENAN [Concomitant]
     Active Substance: MORPHINE SULFATE
  14. HYDROCORTISONE [Concomitant]
     Active Substance: HYDROCORTISONE
  15. ZOPICLONE [Concomitant]
     Active Substance: ZOPICLONE
  16. VITAMIN B12 [Concomitant]
     Active Substance: CYANOCOBALAMIN
  17. POTASSIUM CHLORIDE [Concomitant]
     Active Substance: POTASSIUM CHLORIDE
  18. ALFUZOSIN [Concomitant]
     Active Substance: ALFUZOSIN
  19. OXAZEPAM [Concomitant]
     Active Substance: OXAZEPAM
  20. LANSOPRAZOLE [Concomitant]
     Active Substance: LANSOPRAZOLE
  21. PEMETREXED [Suspect]
     Active Substance: PEMETREXED
     Indication: Lung adenocarcinoma
     Dates: start: 20220826, end: 20220826
  22. CARBOPLATIN [Concomitant]
     Active Substance: CARBOPLATIN
     Indication: Lung adenocarcinoma
     Dates: start: 20220613, end: 20220613
  23. CARBOPLATIN [Concomitant]
     Active Substance: CARBOPLATIN
     Indication: Lung adenocarcinoma
     Dates: start: 20220727, end: 20220727
  24. PEMETREXED [Suspect]
     Active Substance: PEMETREXED
     Indication: Lung adenocarcinoma
     Dates: start: 20220915, end: 20220915
  25. PEMETREXED [Suspect]
     Active Substance: PEMETREXED
     Indication: Lung adenocarcinoma
     Dates: start: 20220727, end: 20220727
  26. PEMETREXED [Suspect]
     Active Substance: PEMETREXED
     Indication: Lung adenocarcinoma
     Dates: start: 20221013, end: 20221013

REACTIONS (1)
  - Hepatic cytolysis [Recovered/Resolved]

NARRATIVE: CASE EVENT DATE: 20220923
